FAERS Safety Report 5211765-3 (Version None)
Quarter: 2007Q1

REPORT INFORMATION
  Report Type: 
  Country: None (occurrence: None)
  Receive Date: 20070118
  Receipt Date: 20070109
  Transmission Date: 20070707
  Serious: Yes (Death)
  Sender: FDA-Public Use
  Company Number: US-BRISTOL-MYERS SQUIBB COMPANY-13596358

PATIENT
  Age: 31 Year
  Sex: Male

DRUGS (7)
  1. COUMADIN [Suspect]
     Indication: DEEP VEIN THROMBOSIS
     Route: 048
  2. DURAGESIC-100 [Concomitant]
  3. AMBIEN [Concomitant]
  4. IRON [Concomitant]
  5. LORAZEPAM [Concomitant]
  6. OXYCODONE HCL [Concomitant]
  7. COMPAZINE [Concomitant]

REACTIONS (1)
  - COLON CANCER METASTATIC [None]
